FAERS Safety Report 26118085 (Version 1)
Quarter: 2025Q4

REPORT INFORMATION
  Report Type: Spontaneous
  Country: EU (occurrence: EU)
  Receive Date: 20251203
  Receipt Date: 20251203
  Transmission Date: 20260118
  Serious: Yes (Other)
  Sender: PFIZER
  Company Number: EU-PFIZER INC-PV202500140689

PATIENT
  Age: 83 Year
  Sex: Female

DRUGS (2)
  1. PALBOCICLIB [Suspect]
     Active Substance: PALBOCICLIB
     Indication: Breast cancer
     Dosage: UNK, CYCLIC
     Dates: start: 2018, end: 2023
  2. EXEMESTANE [Concomitant]
     Active Substance: EXEMESTANE
     Indication: Breast cancer
     Dosage: UNK UNK, CYCLIC
     Dates: start: 2018, end: 2023

REACTIONS (2)
  - Neutropenia [Unknown]
  - Osteonecrosis of jaw [Recovered/Resolved]
